FAERS Safety Report 7508273-3 (Version None)
Quarter: 2011Q2

REPORT INFORMATION
  Report Type: 
  Country: None (occurrence: None)
  Receive Date: 20110527
  Receipt Date: 20110520
  Transmission Date: 20111010
  Serious: Yes (Other)
  Sender: FDA-Public Use
  Company Number: GR-PFIZER INC-2011111345

PATIENT
  Sex: Male

DRUGS (1)
  1. LYRICA [Suspect]
     Indication: NEURALGIA
     Dosage: UNK
     Route: 048

REACTIONS (5)
  - DYSPNOEA [None]
  - ALCOHOL INTERACTION [None]
  - HYPOTHERMIA [None]
  - SLEEP DISORDER [None]
  - MOANING [None]
